FAERS Safety Report 16695094 (Version 2)
Quarter: 2019Q3

REPORT INFORMATION
  Report Type: Report from Study
  Country: US (occurrence: US)
  Receive Date: 20190813
  Receipt Date: 20190823
  Transmission Date: 20191004
  Serious: Yes (Death, Other)
  Sender: FDA-Public Use
  Company Number: US-BIOGEN-2019BI00771976

PATIENT
  Sex: Female

DRUGS (2)
  1. TYSABRI [Suspect]
     Active Substance: NATALIZUMAB
     Route: 065
     Dates: end: 20181216
  2. TYSABRI [Suspect]
     Active Substance: NATALIZUMAB
     Indication: MULTIPLE SCLEROSIS
     Route: 065
     Dates: start: 20161130, end: 20181206

REACTIONS (6)
  - Neuromyopathy [Unknown]
  - Hemiplegia [Unknown]
  - Essential hypertension [Unknown]
  - Pneumonia [Fatal]
  - Osteoarthritis [Unknown]
  - Muscle spasms [Unknown]

NARRATIVE: CASE EVENT DATE: 2019
